FAERS Safety Report 17192597 (Version 1)
Quarter: 2019Q4

REPORT INFORMATION
  Report Type: Spontaneous
  Country: FR (occurrence: FR)
  Receive Date: 20191223
  Receipt Date: 20191223
  Transmission Date: 20200122
  Serious: Yes (Death)
  Sender: FDA-Public Use
  Company Number: FR-PFIZER INC-2019549511

PATIENT
  Age: 60 Year
  Sex: Female
  Weight: 53 kg

DRUGS (4)
  1. FLUOROURACIL. [Suspect]
     Active Substance: FLUOROURACIL
     Indication: RECTAL CANCER
     Dosage: 3650 MG, UNK
     Route: 042
     Dates: start: 20191104, end: 20191106
  2. FLUOROURACIL. [Suspect]
     Active Substance: FLUOROURACIL
     Dosage: 600 MG, UNK
     Route: 040
     Dates: start: 20191104, end: 20191106
  3. IRINOTECAN HCL [Suspect]
     Active Substance: IRINOTECAN HYDROCHLORIDE
     Indication: RECTAL CANCER
     Route: 042
     Dates: start: 20191104, end: 20191104
  4. OXALIPLATIN. [Suspect]
     Active Substance: OXALIPLATIN
     Indication: RECTAL CANCER
     Dosage: 130 MG, UNK
     Route: 042
     Dates: start: 20191104, end: 20191104

REACTIONS (6)
  - Cardio-respiratory arrest [Fatal]
  - Diarrhoea [Fatal]
  - Bradycardia [Fatal]
  - Abdominal pain [Fatal]
  - Dehydration [Fatal]
  - Hypotension [Fatal]

NARRATIVE: CASE EVENT DATE: 20191118
